FAERS Safety Report 21883916 (Version 1)
Quarter: 2023Q1

REPORT INFORMATION
  Report Type: Spontaneous
  Country: US (occurrence: None)
  Receive Date: 20230118
  Receipt Date: 20230118
  Transmission Date: 20230418
  Serious: No
  Sender: FDA-Public Use
  Company Number: None

PATIENT
  Age: 68 Year
  Sex: Female
  Weight: 69.4 kg

DRUGS (20)
  1. BRAFTOVI [Suspect]
     Active Substance: ENCORAFENIB
     Indication: Colon cancer
     Dosage: FREQUENCY : DAILY;?
     Route: 048
     Dates: start: 20220810
  2. ASPIRIN [Concomitant]
  3. ATORVASTATIN [Concomitant]
  4. BENZAEPRIL-HYDROCHLOROTHIAZIDE [Concomitant]
  5. CLOPIDOGREL [Concomitant]
  6. ESCITALOPRAM [Concomitant]
     Active Substance: ESCITALOPRAM OXALATE
  7. FERROUS SULFATE [Concomitant]
     Active Substance: FERROUS SULFATE
  8. GABAPENTIN [Concomitant]
  9. LEVOTHYROXINE [Concomitant]
  10. LORAZEPAM [Concomitant]
     Active Substance: LORAZEPAM
  11. METOPROLOL [Concomitant]
     Active Substance: METOPROLOL
  12. NITROGLYCERIN [Concomitant]
  13. NOVOLOG [Concomitant]
  14. ONDANSETRON [Concomitant]
  15. PERCOCET [Concomitant]
  16. PANTOPRAZOLE [Concomitant]
  17. PROCHLORPERZINE [Concomitant]
  18. PROMETHAZINE [Concomitant]
  19. TRESIBA [Concomitant]
  20. TRULANCE [Concomitant]
     Active Substance: PLECANATIDE

REACTIONS (3)
  - Disease progression [None]
  - Colon cancer [None]
  - Drug ineffective [None]
